FAERS Safety Report 18879570 (Version 2)
Quarter: 2021Q4

REPORT INFORMATION
  Report Type: Spontaneous
  Country: US (occurrence: US)
  Receive Date: 20210211
  Receipt Date: 20211217
  Transmission Date: 20220304
  Serious: No
  Sender: FDA-Public Use
  Company Number: US-GW PHARMA-202102USGW00446

PATIENT

DRUGS (2)
  1. EPIDIOLEX [Suspect]
     Active Substance: CANNABIDIOL
     Indication: Epilepsy
     Dosage: 10.29 MG/KG/DAY, 140 MILLIGRAM, BID (REACHING OUT TO MD OFFICE FOR INCREASED DOSE)
     Route: 048
     Dates: start: 202012
  2. EPIDIOLEX [Suspect]
     Active Substance: CANNABIDIOL
     Dosage: 400 MILLIGRAMS
     Route: 048
     Dates: start: 20210513

REACTIONS (3)
  - Weight increased [Unknown]
  - Atonic seizures [Unknown]
  - Weight increased [Unknown]
